FAERS Safety Report 24546035 (Version 2)
Quarter: 2024Q4

REPORT INFORMATION
  Report Type: Report from Study
  Country: US (occurrence: US)
  Receive Date: 20241024
  Receipt Date: 20241113
  Transmission Date: 20250115
  Serious: Yes (Hospitalization, Other)
  Sender: UCB
  Company Number: US-UCBSA-2024045896

PATIENT
  Sex: Female

DRUGS (2)
  1. ROZANOLIXIZUMAB [Suspect]
     Active Substance: ROZANOLIXIZUMAB
     Indication: Myasthenia gravis
     Dosage: CYCLE 1: 560 MILLIGRAM, WEEKLY (QW) FOR SIX WEEKS
     Route: 058
  2. ROZANOLIXIZUMAB [Suspect]
     Active Substance: ROZANOLIXIZUMAB
     Dosage: CYCLE 2: 560 MILLIGRAM, WEEKLY (QW) FOR SIX WEEKS
     Route: 058
     Dates: start: 20240814

REACTIONS (5)
  - Myasthenia gravis [Not Recovered/Not Resolved]
  - Hip surgery [Unknown]
  - Asthenia [Unknown]
  - Irritability [Unknown]
  - Malaise [Unknown]

NARRATIVE: CASE EVENT DATE: 20240101
